FAERS Safety Report 25900733 (Version 1)
Quarter: 2025Q4

REPORT INFORMATION
  Report Type: Spontaneous
  Country: US (occurrence: None)
  Receive Date: 20251008
  Receipt Date: 20251008
  Transmission Date: 20260117
  Serious: Yes (Other)
  Sender: FDA-CTU
  Company Number: None

PATIENT
  Age: 78 Year
  Sex: Male

DRUGS (1)
  1. DABIGATRAN [Suspect]
     Active Substance: DABIGATRAN

REACTIONS (3)
  - Dyspnoea [None]
  - Swollen tongue [None]
  - Dizziness [None]

NARRATIVE: CASE EVENT DATE: 20250928
